FAERS Safety Report 7335596-3 (Version None)
Quarter: 2011Q1

REPORT INFORMATION
  Report Type: 
  Country: None (occurrence: None)
  Receive Date: 20110301
  Receipt Date: 20110301
  Transmission Date: 20110831
  Serious: Yes (Hospitalization)
  Sender: FDA-Public Use
  Company Number: None

PATIENT
  Sex: Female
  Weight: 67 kg

DRUGS (6)
  1. DOXORUBICIN HCL [Suspect]
     Dosage: 97.92 MG
  2. VINCRISTINE SULFATE [Suspect]
     Dosage: 2.72 MG
  3. PREDNISONE [Suspect]
     Dosage: 1000 MG 4
  4. RITUXIMAB (MOAB C2B8 ANTI CD 20, CHIMERIC) [Suspect]
     Dosage: 637 MG
  5. CYCLOPHOSPHAMIDE [Suspect]
     Dosage: 1836 MG
  6. ETOPOSIDE [Suspect]
     Dosage: 489.6 MG

REACTIONS (14)
  - HAEMOGLOBIN DECREASED [None]
  - RENAL FAILURE ACUTE [None]
  - ABDOMINAL DISTENSION [None]
  - DIARRHOEA [None]
  - HYPOVOLAEMIA [None]
  - HYPOALBUMINAEMIA [None]
  - HYPOPHAGIA [None]
  - DECREASED APPETITE [None]
  - BLOOD SODIUM DECREASED [None]
  - CLOSTRIDIUM TEST POSITIVE [None]
  - DYSPNOEA [None]
  - DEHYDRATION [None]
  - PLEURAL EFFUSION [None]
  - BLOOD POTASSIUM DECREASED [None]
